FAERS Safety Report 8443409-1 (Version None)
Quarter: 2012Q2

REPORT INFORMATION
  Report Type: 
  Country: None (occurrence: None)
  Receive Date: 20120612
  Receipt Date: 20120612
  Transmission Date: 20120825
  Serious: Yes (Other)
  Sender: FDA-Public Use
  Company Number: None

PATIENT
  Age: 51 Year
  Sex: Female
  Weight: 75.7507 kg

DRUGS (1)
  1. DICLOFENAC SODIUM [Suspect]
     Indication: ARTHRALGIA
     Dosage: 75MG TAB 1 TWICE A DAY 3 TABS TOTAL
     Dates: start: 20120518, end: 20120520

REACTIONS (2)
  - HAEMATOCHEZIA [None]
  - ABDOMINAL PAIN [None]
